FAERS Safety Report 21479415 (Version 1)
Quarter: 2022Q4

REPORT INFORMATION
  Report Type: Report from Study
  Country: KE (occurrence: KE)
  Receive Date: 20221019
  Receipt Date: 20221019
  Transmission Date: 20230112
  Serious: Yes (Death, Life-Threatening, Hospitalization, Other)
  Sender: FDA-Public Use
  Company Number: KE-NOVARTISPH-NVSC2022KE234764

PATIENT
  Age: 88 Year
  Sex: Male

DRUGS (1)
  1. SACUBITRIL\VALSARTAN [Suspect]
     Active Substance: SACUBITRIL\VALSARTAN
     Indication: Cardiac failure chronic
     Dosage: 50 MG, BID
     Route: 048
     Dates: start: 202204

REACTIONS (12)
  - Orthopnoea [Fatal]
  - Vomiting [Fatal]
  - Dyspnoea paroxysmal nocturnal [Fatal]
  - Angina pectoris [Fatal]
  - Abdominal tenderness [Fatal]
  - Abdominal distension [Fatal]
  - Hepatomegaly [Fatal]
  - Splenomegaly [Fatal]
  - Blood pressure increased [Fatal]
  - Sepsis [Fatal]
  - Cardiac failure [Fatal]
  - Arrhythmia [Fatal]

NARRATIVE: CASE EVENT DATE: 20221001
